FAERS Safety Report 10033585 (Version 2)
Quarter: 2014Q2

REPORT INFORMATION
  Report Type: Spontaneous
  Country: JP (occurrence: JP)
  Receive Date: 20140325
  Receipt Date: 20140411
  Transmission Date: 20141212
  Serious: Yes (Death)
  Sender: FDA-Public Use
  Company Number: JP-BEH-2014041133

PATIENT
  Age: 17 Year
  Sex: Female

DRUGS (1)
  1. IMMUNOGLOBULIN I.V. [Suspect]
     Indication: DERMATOMYOSITIS

REACTIONS (1)
  - Drug effect incomplete [Fatal]
